FAERS Safety Report 16006713 (Version 2)
Quarter: 2023Q1

REPORT INFORMATION
  Report Type: Spontaneous
  Country: US (occurrence: US)
  Receive Date: 20190226
  Receipt Date: 20230223
  Transmission Date: 20230418
  Serious: Yes (Other)
  Sender: FDA-Public Use
  Company Number: US-COOPERSURGICAL, INC.-US-2019CPS000408

PATIENT
  Age: 29 Year
  Sex: Female
  Weight: 54.422 kg

DRUGS (1)
  1. PARAGARD T 380A [Suspect]
     Active Substance: COPPER
     Indication: Contraception
     Dosage: UNK
     Route: 015
     Dates: start: 20151007

REACTIONS (14)
  - Injury associated with device [Unknown]
  - Deformity [Unknown]
  - Device breakage [Unknown]
  - Foreign body in reproductive tract [Not Recovered/Not Resolved]
  - Complication of device removal [Unknown]
  - Post procedural haemorrhage [Recovered/Resolved]
  - Embedded device [Unknown]
  - Device expulsion [Recovered/Resolved]
  - Anxiety [Unknown]
  - Emotional distress [Unknown]
  - Reproductive complication associated with device [Unknown]
  - Economic problem [Unknown]
  - Discomfort [Unknown]
  - Pain [Unknown]

NARRATIVE: CASE EVENT DATE: 20190101
